FAERS Safety Report 9681395 (Version 2)
Quarter: 2014Q1

REPORT INFORMATION
  Report Type: Spontaneous
  Country: IT (occurrence: None)
  Receive Date: 20131107
  Receipt Date: 20140109
  Transmission Date: 20141002
  Serious: Yes (Other)
  Sender: FDA-Public Use
  Company Number: AUR-APL-2013-09109

PATIENT
  Age: 72 Year
  Sex: Male

DRUGS (4)
  1. FINASTERIDE [Suspect]
     Indication: BENIGN PROSTATIC HYPERPLASIA
     Dosage: (5 MG, 1 D) , ORAL
     Route: 048
     Dates: start: 20130213, end: 20130311
  2. UROREC (SILODOSIN) [Concomitant]
  3. METFORMIN HYDROCHLORIDE (METFORMIN HYDROCHLORIDE) [Concomitant]
  4. ACETYLSALICYLIC ACID (ACETYLSALICYLIC ACID) [Concomitant]

REACTIONS (5)
  - Pollakiuria [None]
  - Abdominal pain lower [None]
  - Abdominal pain lower [None]
  - Dysuria [None]
  - Musculoskeletal discomfort [None]
